FAERS Safety Report 13252606 (Version 2)
Quarter: 2017Q2

REPORT INFORMATION
  Report Type: Spontaneous
  Country: US (occurrence: US)
  Receive Date: 20170220
  Receipt Date: 20170425
  Transmission Date: 20170830
  Serious: No
  Sender: FDA-Public Use
  Company Number: US-TAKEDA-2017TUS003432

PATIENT
  Sex: Male
  Weight: 92.97 kg

DRUGS (1)
  1. ENTYVIO [Suspect]
     Active Substance: VEDOLIZUMAB
     Indication: COLITIS ULCERATIVE
     Dosage: 300 MG, UNK
     Route: 042
     Dates: start: 20161214

REACTIONS (10)
  - Micturition frequency decreased [Unknown]
  - Arthralgia [Unknown]
  - Fatigue [Unknown]
  - Rash pruritic [Unknown]
  - Peripheral swelling [Not Recovered/Not Resolved]
  - Chills [Unknown]
  - Joint swelling [Not Recovered/Not Resolved]
  - Body temperature decreased [Unknown]
  - Piloerection [Unknown]
  - Drug ineffective [Unknown]
